FAERS Safety Report 11985506 (Version 1)
Quarter: 2016Q1

REPORT INFORMATION
  Report Type: Not Available
  Country: DE (occurrence: US)
  Receive Date: 20160201
  Receipt Date: 20160201
  Transmission Date: 20160526
  Serious: No
  Sender: FDA-Public Use
  Company Number: DE-ANIPHARMA-2015-US-001143

PATIENT
  Sex: Female

DRUGS (1)
  1. FLUVOXAMINE (NON-SPECIFIC) [Suspect]
     Active Substance: FLUVOXAMINE
     Route: 048

REACTIONS (2)
  - Insomnia [Unknown]
  - Nightmare [Unknown]
